FAERS Safety Report 9678860 (Version 2)
Quarter: 2013Q4

REPORT INFORMATION
  Report Type: Report from Study
  Country: JP (occurrence: JP)
  Receive Date: 20131108
  Receipt Date: 20131108
  Transmission Date: 20140711
  Serious: Yes (Hospitalization)
  Sender: FDA-Public Use
  Company Number: JP-ALLERGAN-1316307US

PATIENT
  Age: 88 Year
  Sex: Male

DRUGS (2)
  1. BRIMONIDINE 1MG/ML SOL (9541X) [Suspect]
     Indication: GLAUCOMA
     Dosage: 1 DROP IN EACH EYE TWICE DAILY
     Route: 047
     Dates: start: 20130312
  2. MIROL [Concomitant]
     Indication: PRODUCT USED FOR UNKNOWN INDICATION
     Dosage: UNK

REACTIONS (1)
  - Pneumonia [Unknown]
